FAERS Safety Report 24370920 (Version 1)
Quarter: 2024Q3

REPORT INFORMATION
  Report Type: Spontaneous
  Country: PE (occurrence: PE)
  Receive Date: 20240927
  Receipt Date: 20240927
  Transmission Date: 20241016
  Serious: Yes (Hospitalization)
  Sender: STRIDES
  Company Number: PE-STRIDES ARCOLAB LIMITED-2024SP012444

PATIENT
  Age: 45 Year
  Sex: Male

DRUGS (11)
  1. PREDNISOLONE [Suspect]
     Active Substance: PREDNISOLONE
     Indication: Back pain
     Dosage: 75 MILLIGRAM, QD
     Route: 048
  2. ACETAMINOPHEN [Concomitant]
     Active Substance: ACETAMINOPHEN
     Indication: Back pain
     Dosage: 1 GRAM, EVERY 8 HOURS
     Route: 042
  3. ACETAMINOPHEN [Concomitant]
     Active Substance: ACETAMINOPHEN
     Dosage: UNK (THERAPY REDUCED)
     Route: 042
  4. KETOPROFEN [Concomitant]
     Active Substance: KETOPROFEN
     Indication: Back pain
     Dosage: 100 MILLIGRAM, EVERY 8 HOURS
     Route: 042
  5. KETOPROFEN [Concomitant]
     Active Substance: KETOPROFEN
     Dosage: UNK (THERAPY REDUCED)
     Route: 042
  6. MORPHINE [Concomitant]
     Active Substance: MORPHINE
     Indication: Back pain
     Dosage: 40 MILLIGRAM, QD (1.67MG/H) (INFUSION)
     Route: 042
  7. MORPHINE [Concomitant]
     Active Substance: MORPHINE
     Dosage: 5 MILLIGRAM, PRN (5MG AS NEEDED UP TO 3 TIMES PER DAY)
     Route: 065
  8. MORPHINE [Concomitant]
     Active Substance: MORPHINE
     Dosage: UNK (THERAPY REDUCED)
     Route: 065
  9. ORPHENADRINE [Concomitant]
     Active Substance: ORPHENADRINE
     Indication: Back pain
     Dosage: 60 MILLIGRAM, EVERY 12 HRS
     Route: 042
  10. ORPHENADRINE [Concomitant]
     Active Substance: ORPHENADRINE
     Dosage: UNK (THERAPY REDUCED)
     Route: 042
  11. TRAMADOL [Concomitant]
     Active Substance: TRAMADOL\TRAMADOL HYDROCHLORIDE
     Indication: Back pain
     Dosage: 12.5 MILLIGRAM, EVERY HOUR
     Route: 042

REACTIONS (4)
  - Spinal stenosis [Recovered/Resolved]
  - Streptococcal infection [Recovered/Resolved]
  - Intervertebral discitis [Recovered/Resolved]
  - Intentional product misuse [Unknown]
